FAERS Safety Report 15936579 (Version 1)
Quarter: 2019Q1

REPORT INFORMATION
  Report Type: Spontaneous
  Country: JP (occurrence: JP)
  Receive Date: 20190208
  Receipt Date: 20190208
  Transmission Date: 20190417
  Serious: Yes (Hospitalization, Other)
  Sender: FDA-Public Use
  Company Number: JP-SUN PHARMACEUTICAL INDUSTRIES LTD-2019RR-198683

PATIENT
  Age: 84 Year
  Sex: Male

DRUGS (8)
  1. CALCIUM FOLINAT [Suspect]
     Active Substance: LEUCOVORIN CALCIUM
     Indication: COLON CANCER
     Dosage: SECOND LINE TREATMENT
     Route: 065
  2. FLUOROURACIL. [Suspect]
     Active Substance: FLUOROURACIL
     Indication: COLON CANCER
     Route: 065
  3. BEVACIZUMAB. [Suspect]
     Active Substance: BEVACIZUMAB
     Dosage: THIRD LINE TREATMENT
     Route: 065
  4. BEVACIZUMAB. [Suspect]
     Active Substance: BEVACIZUMAB
     Indication: COLON CANCER
     Dosage: FIRST-LINE TREATMENT
     Route: 065
  5. IRINOTECAN [Suspect]
     Active Substance: IRINOTECAN
     Indication: COLON CANCER
     Dosage: SECOND LINE TREATMENT
     Route: 065
  6. TRIFLURIDINE/THYMIDINE PHOSPHORYLASE INHIBITOR [TIPIRACIL HYDROCHLORIDE\TRIFLURIDINE] [Suspect]
     Active Substance: TIPIRACIL HYDROCHLORIDE\TRIFLURIDINE
     Indication: COLON CANCER
     Dosage: THIRD LINE TREATMENT
     Route: 065
  7. OXALIPLATIN. [Suspect]
     Active Substance: OXALIPLATIN
     Indication: COLON CANCER
     Dosage: UNK
     Route: 065
  8. CETUXIMAB. [Suspect]
     Active Substance: CETUXIMAB
     Indication: COLON CANCER
     Dosage: SECOND LINE TREATMENT
     Route: 065

REACTIONS (5)
  - Neutropenia [Unknown]
  - Drug effect incomplete [Unknown]
  - Therapy partial responder [Unknown]
  - Disease progression [Unknown]
  - Gastrointestinal disorder [Unknown]
